FAERS Safety Report 14211686 (Version 1)
Quarter: 2017Q4

REPORT INFORMATION
  Report Type: Spontaneous
  Country: US (occurrence: None)
  Receive Date: 20171121
  Receipt Date: 20171121
  Transmission Date: 20180321
  Serious: Yes (Hospitalization)
  Sender: FDA-Public Use
  Company Number: None

PATIENT
  Age: 75 Year
  Sex: Male
  Weight: 78.6 kg

DRUGS (1)
  1. TEMOZOLOMIDE. [Suspect]
     Active Substance: TEMOZOLOMIDE
     Dates: end: 20171010

REACTIONS (10)
  - Acute kidney injury [None]
  - Sepsis [None]
  - Encephalopathy [None]
  - Confusional state [None]
  - Asthenia [None]
  - Pneumonia [None]
  - Dehydration [None]
  - Blood creatinine increased [None]
  - Gait disturbance [None]
  - Visual impairment [None]

NARRATIVE: CASE EVENT DATE: 20171108
